FAERS Safety Report 9753036 (Version 3)
Quarter: 2014Q1

REPORT INFORMATION
  Report Type: Spontaneous
  Country: CN (occurrence: CN)
  Receive Date: 20131213
  Receipt Date: 20140327
  Transmission Date: 20141002
  Serious: Yes (Other)
  Sender: FDA-Public Use
  Company Number: CN-ABBVIE-13P-035-1178327-00

PATIENT
  Age: 35 Year
  Sex: Male

DRUGS (3)
  1. DEPAKINE CHRONO [Suspect]
     Indication: CEREBRAL HAEMORRHAGE
     Route: 048
     Dates: start: 201305
  2. PHENYTOIN SODIUM [Concomitant]
     Indication: PRODUCT USED FOR UNKNOWN INDICATION
  3. NIFEDIPINE [Concomitant]
     Indication: PRODUCT USED FOR UNKNOWN INDICATION
     Dates: start: 201211

REACTIONS (2)
  - Convulsion [Recovered/Resolved]
  - Suspected counterfeit product [Not Recovered/Not Resolved]
